FAERS Safety Report 14504714 (Version 1)
Quarter: 2018Q1

REPORT INFORMATION
  Report Type: Spontaneous
  Country: US (occurrence: US)
  Receive Date: 20180208
  Receipt Date: 20180208
  Transmission Date: 20180509
  Serious: No
  Sender: FDA-Public Use
  Company Number: US-JNJFOC-20171216770

PATIENT
  Sex: Male

DRUGS (2)
  1. TYLENOL 8HR [Suspect]
     Active Substance: ACETAMINOPHEN
     Indication: PROCEDURAL PAIN
     Dosage: EXPIRY DATE: 30-SEP-2019
     Route: 065
  2. TYLENOL 8HR [Suspect]
     Active Substance: ACETAMINOPHEN
     Indication: KNEE ARTHROPLASTY
     Dosage: EXPIRY DATE: 30-SEP-2019
     Route: 065

REACTIONS (3)
  - Product contamination physical [Unknown]
  - Product use in unapproved indication [Unknown]
  - Off label use [Unknown]
